FAERS Safety Report 4570544-0 (Version None)
Quarter: 2005Q1

REPORT INFORMATION
  Report Type: 
  Country: None (occurrence: None)
  Receive Date: 20050203
  Receipt Date: 20050203
  Transmission Date: 20050727
  Serious: Yes (Life-Threatening, Hospitalization)
  Sender: FDA-Public Use
  Company Number: None

PATIENT
  Sex: Female
  Weight: 99.7913 kg

DRUGS (6)
  1. VIOXX [Suspect]
     Indication: ARTHRALGIA
     Dosage: SEE IMAGE
     Dates: start: 20020301, end: 20030801
  2. VIOXX [Suspect]
     Indication: BACK PAIN
     Dosage: SEE IMAGE
     Dates: start: 20020301, end: 20030801
  3. VIOXX [Suspect]
     Indication: ARTHRALGIA
     Dosage: SEE IMAGE
     Dates: start: 20040416
  4. VIOXX [Suspect]
     Indication: BACK PAIN
     Dosage: SEE IMAGE
     Dates: start: 20040416
  5. MECLIZINE [Concomitant]
  6. HYDROCHLOROTHIAZIDE [Concomitant]

REACTIONS (5)
  - BLOOD CHOLESTEROL INCREASED [None]
  - CHEST DISCOMFORT [None]
  - DYSPNOEA [None]
  - MYOCARDIAL INFARCTION [None]
  - RESPIRATORY TRACT CONGESTION [None]
